FAERS Safety Report 12620528 (Version 1)
Quarter: 2016Q3

REPORT INFORMATION
  Report Type: Report from Study
  Country: RO (occurrence: RO)
  Receive Date: 20160804
  Receipt Date: 20160804
  Transmission Date: 20161109
  Serious: Yes (Hospitalization)
  Sender: FDA-Public Use
  Company Number: RO-ABBVIE-16K-135-1692048-00

PATIENT
  Age: 68 Year
  Sex: Male

DRUGS (5)
  1. HUMULIN R [Concomitant]
     Active Substance: INSULIN HUMAN
     Indication: TYPE 2 DIABETES MELLITUS
     Dosage: 8UI
     Route: 058
     Dates: start: 2014
  2. SIOFOR [Concomitant]
     Active Substance: METFORMIN HYDROCHLORIDE
     Indication: TYPE 2 DIABETES MELLITUS
     Dosage: 3X 0.5 TB/DAY
     Route: 048
     Dates: start: 2014
  3. DUODOPA [Suspect]
     Active Substance: CARBIDOPA\LEVODOPA
     Indication: PARKINSON^S DISEASE
     Dosage: 8 ML/6.5 ML/3 ML (16 HOURS)
     Route: 050
     Dates: start: 20150522
  4. EXELON [Concomitant]
     Active Substance: RIVASTIGMINE TARTRATE
     Indication: MIXED DEMENTIA
     Dosage: 1 PATCH/DAY
     Route: 062
     Dates: start: 20150526
  5. LANTUS [Concomitant]
     Active Substance: INSULIN GLARGINE
     Indication: TYPE 2 DIABETES MELLITUS
     Dosage: 36UI
     Route: 058
     Dates: start: 2014

REACTIONS (3)
  - Pain in extremity [Recovering/Resolving]
  - Peripheral artery stenosis [Recovering/Resolving]
  - Gangrene [Recovering/Resolving]

NARRATIVE: CASE EVENT DATE: 201603
